FAERS Safety Report 4357461-6 (Version None)
Quarter: 2004Q2

REPORT INFORMATION
  Report Type: 
  Country: None (occurrence: None)
  Receive Date: 20040506
  Receipt Date: 20040423
  Transmission Date: 20050107
  Serious: Yes (Death)
  Sender: FDA-Public Use
  Company Number: 2004-UK-00399UK

PATIENT
  Age: 74 Year
  Sex: Female

DRUGS (7)
  1. SPIRIVA [Suspect]
     Indication: CHRONIC OBSTRUCTIVE AIRWAYS DISEASE
     Dosage: 18 MCG IH
     Route: 055
     Dates: start: 20040407
  2. SYMBICORT (SYMBICORT TURBUHALER ^DRACO^) [Concomitant]
  3. SALBUTAMOL (SALBUTAMOL) [Concomitant]
  4. COMBIVENT [Concomitant]
  5. PREDNISOLONE [Concomitant]
  6. LANSOPRAZOLE [Concomitant]
  7. FUROSEMIDE [Concomitant]

REACTIONS (3)
  - CHRONIC OBSTRUCTIVE AIRWAYS DISEASE EXACERBATED [None]
  - COR PULMONALE [None]
  - DYSPEPSIA [None]
